FAERS Safety Report 13876444 (Version 1)
Quarter: 2017Q3

REPORT INFORMATION
  Report Type: Spontaneous
  Country: GB (occurrence: GB)
  Receive Date: 20170817
  Receipt Date: 20170817
  Transmission Date: 20171127
  Serious: Yes (Life-Threatening)
  Sender: FDA-Public Use
  Company Number: GB-FRESENIUS KABI-FK201706925

PATIENT
  Age: 59 Year
  Sex: Female

DRUGS (1)
  1. METHYLPREDNISOLONE (MANUFACTURER UNKNOWN) [Suspect]
     Active Substance: METHYLPREDNISOLONE
     Indication: ANTIINFLAMMATORY THERAPY
     Route: 042

REACTIONS (5)
  - Sepsis [Unknown]
  - Condition aggravated [Unknown]
  - Respiratory failure [Recovered/Resolved with Sequelae]
  - Strongyloidiasis [Unknown]
  - Pericarditis constrictive [Not Recovered/Not Resolved]
